FAERS Safety Report 5367179-9 (Version None)
Quarter: 2007Q2

REPORT INFORMATION
  Report Type: 
  Country: None (occurrence: None)
  Receive Date: 20070620
  Receipt Date: 20070620
  Transmission Date: 20071010
  Serious: Yes (Hospitalization)
  Sender: FDA-Public Use
  Company Number: None

PATIENT
  Age: 83 Year
  Sex: Male

DRUGS (1)
  1. LEVOFLOXACIN [Suspect]
     Indication: INFECTION
     Dosage: 500MG EVERY DAY PO
     Route: 048
     Dates: start: 20070427, end: 20070502

REACTIONS (1)
  - CLOSTRIDIUM DIFFICILE COLITIS [None]
